FAERS Safety Report 6177417-0 (Version None)
Quarter: 2009Q2

REPORT INFORMATION
  Report Type: 
  Country: None (occurrence: None)
  Receive Date: 20090504
  Receipt Date: 20090416
  Transmission Date: 20091009
  Serious: Yes (Other)
  Sender: FDA-Public Use
  Company Number: US-BAYER-200917589NA

PATIENT
  Age: 42 Year
  Sex: Female

DRUGS (1)
  1. MIRENA [Suspect]
     Indication: CONTRACEPTION
     Dosage: CONTINUOUS
     Route: 015
     Dates: start: 20080708, end: 20090313

REACTIONS (5)
  - DEVICE SHAPE ALTERATION [None]
  - GENITAL HAEMORRHAGE [None]
  - IUCD COMPLICATION [None]
  - METRORRHAGIA [None]
  - RECTAL HAEMORRHAGE [None]
